FAERS Safety Report 4492704-X (Version None)
Quarter: 2004Q4

REPORT INFORMATION
  Report Type: 
  Country: None (occurrence: None)
  Receive Date: 20041102
  Receipt Date: 20041102
  Transmission Date: 20050328
  Serious: No
  Sender: FDA-Public Use
  Company Number: None

PATIENT
  Age: 17 Year
  Sex: Male

DRUGS (2)
  1. ARIPIPRAZOLE 10 MG [Suspect]
     Dosage: 10 MG QD ORAL
     Route: 048
  2. VALPROIC ACID [Concomitant]

REACTIONS (3)
  - BRADYKINESIA [None]
  - DYSGRAPHIA [None]
  - TREMOR [None]
